FAERS Safety Report 25095865 (Version 1)
Quarter: 2025Q1

REPORT INFORMATION
  Report Type: Spontaneous
  Country: US (occurrence: US)
  Receive Date: 20250319
  Receipt Date: 20250319
  Transmission Date: 20250409
  Serious: No
  Sender: TARO
  Company Number: US-TARO PHARMACEUTICALS USA INC.-2024TAR00450

PATIENT

DRUGS (1)
  1. TRETINOIN [Suspect]
     Active Substance: TRETINOIN
     Indication: Skin depigmentation
     Dosage: UNK,OD, A HALF AN INCH SIZE,ONCE A DAY IN THE EVENING
     Route: 061
     Dates: start: 20240319

REACTIONS (2)
  - Dry skin [Recovering/Resolving]
  - Off label use [Unknown]
